FAERS Safety Report 9123697 (Version 1)
Quarter: 2013Q1

REPORT INFORMATION
  Report Type: Spontaneous
  Country: US (occurrence: US)
  Receive Date: 20130114
  Receipt Date: 20130114
  Transmission Date: 20140127
  Serious: Yes (Hospitalization)
  Sender: FDA-Public Use
  Company Number: US-ABBOTT-10P-163-0801751-00

PATIENT
  Age: 12 Year
  Sex: Male

DRUGS (4)
  1. FLUVOXAMINE [Suspect]
     Indication: OBSESSIVE-COMPULSIVE DISORDER
     Dosage: DAILY DOSE:  UNKNOWN, TITRATED UP TO 150 MG OVER THE COURSE OF 3 MONTHS
     Route: 065
     Dates: start: 200904
  2. CLONAZEPAM [Concomitant]
     Indication: OBSESSIVE-COMPULSIVE DISORDER
     Dosage: DAILY DOSE: .25 MILLIGRAM(S)
     Route: 065
     Dates: start: 200811
  3. FLUOXETINE [Concomitant]
     Indication: OBSESSIVE-COMPULSIVE DISORDER
     Dosage: DAILY DOSE: 20 MILLIGRAM(S)
     Route: 065
     Dates: start: 200811, end: 200812
  4. MIRTAZAPINE [Concomitant]
     Indication: PRODUCT USED FOR UNKNOWN INDICATION
     Dosage: DAILY DOSE:  UNKNOWN
     Route: 065
     Dates: end: 2009

REACTIONS (1)
  - Disinhibition [Recovered/Resolved]
